FAERS Safety Report 19355779 (Version 1)
Quarter: 2021Q2

REPORT INFORMATION
  Report Type: Spontaneous
  Country: US (occurrence: US)
  Receive Date: 20210602
  Receipt Date: 20210602
  Transmission Date: 20210717
  Serious: No
  Sender: FDA-Public Use
  Company Number: US-TEVA-2021-US-1912568

PATIENT
  Sex: Female

DRUGS (1)
  1. TEVA^S MUPIROCIN OINTMENT [Suspect]
     Active Substance: MUPIROCIN
     Indication: SINUSITIS

REACTIONS (5)
  - Balance disorder [Unknown]
  - Off label use [Unknown]
  - Product dose omission issue [Unknown]
  - Paranasal sinus discomfort [Unknown]
  - Abdominal pain upper [Unknown]
